FAERS Safety Report 7079875-6 (Version None)
Quarter: 2010Q4

REPORT INFORMATION
  Report Type: 
  Country: None (occurrence: None)
  Receive Date: 20101102
  Receipt Date: 20101026
  Transmission Date: 20110411
  Serious: Yes (Hospitalization)
  Sender: FDA-Public Use
  Company Number: US-SANOFI-AVENTIS-2010SA065821

PATIENT
  Age: 68 Year
  Sex: Male

DRUGS (5)
  1. LANTUS [Suspect]
     Indication: INSULIN-REQUIRING TYPE 2 DIABETES MELLITUS
     Dosage: DOSE:78 UNIT(S)
     Route: 058
  2. LANTUS [Suspect]
     Route: 058
     Dates: start: 20060101
  3. OPTICLICK [Suspect]
     Indication: INSULIN-REQUIRING TYPE 2 DIABETES MELLITUS
     Dates: start: 20060101
  4. LOSARTAN [Suspect]
     Route: 065
  5. ATENOLOL [Concomitant]

REACTIONS (1)
  - BLOOD POTASSIUM INCREASED [None]
